FAERS Safety Report 23023749 (Version 1)
Quarter: 2023Q4

REPORT INFORMATION
  Report Type: Spontaneous
  Country: DE (occurrence: DE)
  Receive Date: 20231003
  Receipt Date: 20231003
  Transmission Date: 20240109
  Serious: Yes (Other)
  Sender: FDA-Public Use
  Company Number: DE-BRISTOL-MYERS SQUIBB COMPANY-2023-138295

PATIENT
  Age: 66 Year

DRUGS (3)
  1. NIVOLUMAB [Suspect]
     Active Substance: NIVOLUMAB
     Indication: Renal cell carcinoma stage II
     Dosage: DOSE : 480MG;     FREQ : Q4W
     Dates: start: 202109
  2. CABOZANTINIB [Suspect]
     Active Substance: CABOZANTINIB
     Indication: Renal cell carcinoma stage II
     Route: 048
     Dates: start: 202110
  3. CABOZANTINIB [Suspect]
     Active Substance: CABOZANTINIB
     Route: 048
     Dates: start: 202111

REACTIONS (3)
  - Epilepsy [Not Recovered/Not Resolved]
  - Malignant neoplasm progression [Unknown]
  - Metastatic renal cell carcinoma [Unknown]

NARRATIVE: CASE EVENT DATE: 20211201
